FAERS Safety Report 6051430-6 (Version None)
Quarter: 2009Q1

REPORT INFORMATION
  Report Type: 
  Country: None (occurrence: None)
  Receive Date: 20090121
  Receipt Date: 20090121
  Transmission Date: 20090719
  Serious: Yes (Other)
  Sender: FDA-Public Use
  Company Number: None

PATIENT
  Age: 48 Year
  Sex: Male
  Weight: 72.5755 kg

DRUGS (2)
  1. KEPPRA [Suspect]
     Indication: CONVULSION
     Dosage: 1 TAB BID PO
     Route: 048
     Dates: start: 20050801
  2. SERTRALINE HYDROCHLORIDE [Suspect]
     Indication: WRONG DRUG ADMINISTERED
     Dosage: PATIENT NOT DIRECTED TO TAKE
     Dates: start: 20080901, end: 20081121

REACTIONS (2)
  - CONVULSION [None]
  - DRUG DISPENSING ERROR [None]
